FAERS Safety Report 15526811 (Version 4)
Quarter: 2018Q4

REPORT INFORMATION
  Report Type: Spontaneous
  Country: GB (occurrence: GB)
  Receive Date: 20181019
  Receipt Date: 20181228
  Transmission Date: 20190205
  Serious: Yes (Other)
  Sender: FDA-Public Use
  Company Number: GB-AMGEN-GBRSP2018123560

PATIENT
  Age: 67 Year
  Sex: Female

DRUGS (1)
  1. ENBREL [Suspect]
     Active Substance: ETANERCEPT
     Indication: PRODUCT USED FOR UNKNOWN INDICATION
     Dosage: 50 MG, QWK
     Route: 058

REACTIONS (7)
  - Pain [Unknown]
  - Arthritis [Unknown]
  - Pain in extremity [Unknown]
  - Insomnia [Unknown]
  - Mobility decreased [Unknown]
  - Malaise [Unknown]
  - Lower respiratory tract infection [Not Recovered/Not Resolved]
